FAERS Safety Report 4758656-X (Version None)
Quarter: 2005Q3

REPORT INFORMATION
  Report Type: 
  Country: None (occurrence: None)
  Receive Date: 20050901
  Receipt Date: 20050819
  Transmission Date: 20060218
  Serious: Yes (Hospitalization, Other)
  Sender: FDA-Public Use
  Company Number: 2005AP04546

PATIENT
  Sex: Female

DRUGS (3)
  1. ZOMIG RM [Suspect]
     Indication: MIGRAINE
     Route: 048
     Dates: start: 20050818, end: 20050818
  2. GASTER [Concomitant]
     Dates: start: 20050817
  3. PRIMPERAN INJ [Concomitant]
     Dates: start: 20050817

REACTIONS (3)
  - BLOOD PRESSURE INCREASED [None]
  - HEADACHE [None]
  - VOMITING [None]
